FAERS Safety Report 23868524 (Version 1)
Quarter: 2024Q2

REPORT INFORMATION
  Report Type: Spontaneous
  Country: CA (occurrence: CA)
  Receive Date: 20240517
  Receipt Date: 20240517
  Transmission Date: 20240715
  Serious: Yes (Hospitalization)
  Sender: FDA-Public Use
  Company Number: CA-HALEON-2167445

PATIENT
  Age: 30 Year
  Sex: Male

DRUGS (27)
  1. ACETAMINOPHEN [Suspect]
     Active Substance: ACETAMINOPHEN
     Indication: Guillain-Barre syndrome
     Route: 065
  2. ACETAMINOPHEN [Suspect]
     Active Substance: ACETAMINOPHEN
     Indication: Neuralgia
  3. DICLOFENAC [Suspect]
     Active Substance: DICLOFENAC
     Indication: Guillain-Barre syndrome
     Route: 065
  4. IBUPROFEN [Suspect]
     Active Substance: IBUPROFEN
     Indication: Guillain-Barre syndrome
  5. DILAUDID [Suspect]
     Active Substance: HYDROMORPHONE HYDROCHLORIDE
     Indication: Guillain-Barre syndrome
  6. DILAUDID [Suspect]
     Active Substance: HYDROMORPHONE HYDROCHLORIDE
     Indication: Neuralgia
  7. ZOPICLONE [Suspect]
     Active Substance: ZOPICLONE
     Indication: Guillain-Barre syndrome
  8. ZOPICLONE [Suspect]
     Active Substance: ZOPICLONE
     Indication: Neuralgia
  9. NABILONE [Suspect]
     Active Substance: NABILONE
     Indication: Guillain-Barre syndrome
  10. NABILONE [Suspect]
     Active Substance: NABILONE
     Indication: Neuralgia
  11. LIDOCAINE [Suspect]
     Active Substance: LIDOCAINE
     Indication: Guillain-Barre syndrome
  12. LIDOCAINE [Suspect]
     Active Substance: LIDOCAINE
     Indication: Neuralgia
  13. PHENYTOIN [Suspect]
     Active Substance: PHENYTOIN
     Indication: Neuralgia
  14. VOLTAREN [Suspect]
     Active Substance: DICLOFENAC SODIUM
     Indication: Product used for unknown indication
  15. HUMAN IMMUNOGLOBULIN G [Suspect]
     Active Substance: HUMAN IMMUNOGLOBULIN G
     Indication: Guillain-Barre syndrome
     Route: 041
  16. HYDROMORPHONE [Suspect]
     Active Substance: HYDROMORPHONE
     Indication: Guillain-Barre syndrome
     Dosage: TIME INTERVAL: AS NECESSARY
     Route: 041
  17. HYDROMORPHONE [Suspect]
     Active Substance: HYDROMORPHONE
     Indication: Neuralgia
  18. OLANZAPINE [Suspect]
     Active Substance: OLANZAPINE
     Indication: Guillain-Barre syndrome
  19. OLANZAPINE [Suspect]
     Active Substance: OLANZAPINE
     Indication: Neuralgia
  20. KETAMINE [Suspect]
     Active Substance: KETAMINE
     Indication: Guillain-Barre syndrome
     Route: 050
  21. KETAMINE [Suspect]
     Active Substance: KETAMINE
     Indication: Neuralgia
  22. VENLAFAXINE [Suspect]
     Active Substance: VENLAFAXINE HYDROCHLORIDE
     Indication: Neuralgia
     Route: 065
  23. VENLAFAXINE [Suspect]
     Active Substance: VENLAFAXINE HYDROCHLORIDE
     Indication: Guillain-Barre syndrome
  24. FENTANYL [Suspect]
     Active Substance: FENTANYL\FENTANYL CITRATE
     Indication: Guillain-Barre syndrome
  25. FENTANYL [Suspect]
     Active Substance: FENTANYL\FENTANYL CITRATE
     Indication: Neuralgia
  26. GABAPENTIN [Suspect]
     Active Substance: GABAPENTIN
     Indication: Guillain-Barre syndrome
     Route: 065
  27. GABAPENTIN [Suspect]
     Active Substance: GABAPENTIN
     Indication: Neuralgia

REACTIONS (3)
  - Inspiratory capacity decreased [Unknown]
  - Drug ineffective [Unknown]
  - Drug ineffective for unapproved indication [Unknown]
